FAERS Safety Report 13642104 (Version 1)
Quarter: 2017Q2

REPORT INFORMATION
  Report Type: Spontaneous
  Country: CH (occurrence: FR)
  Receive Date: 20170612
  Receipt Date: 20170612
  Transmission Date: 20170830
  Serious: Yes (Hospitalization)
  Sender: FDA-Public Use
  Company Number: CH-LPDUSPRD-20170748

PATIENT
  Age: 81 Year
  Sex: Male

DRUGS (9)
  1. NORMACOL [Concomitant]
     Active Substance: KARAYA GUM
     Dosage: DOSE UNKNOWN
     Route: 048
  2. MONOPROST [Concomitant]
     Active Substance: LATANOPROST
     Dosage: 2 DROPS IN EYES IN EVENING
     Route: 047
  3. ZOLPIDEM [Concomitant]
     Active Substance: ZOLPIDEM\ZOLPIDEM TARTRATE
     Dosage: DOSE UNKNOWN
     Route: 048
  4. MORPRAL [Concomitant]
     Dosage: 10MG
     Route: 048
  5. AVLOCARDYL [Concomitant]
     Active Substance: PROPRANOLOL HYDROCHLORIDE
     Dosage: UNKNOWN
     Route: 048
  6. SERTRALINE [Concomitant]
     Active Substance: SERTRALINE HYDROCHLORIDE
     Dosage: UNKNOWN
     Route: 048
  7. LORAZEPAM. [Concomitant]
     Active Substance: LORAZEPAM
     Dosage: 2.5MG
     Route: 048
  8. DAFALGAN [Concomitant]
     Active Substance: ACETAMINOPHEN
     Dosage: 1 TABLET Q8H IF PAIN
     Route: 048
  9. VENOFER [Suspect]
     Active Substance: IRON SUCROSE
     Dosage: 200MG
     Route: 065
     Dates: start: 20150930, end: 20150930

REACTIONS (3)
  - Vomiting [Recovered/Resolved]
  - Hyperthermia [Recovered/Resolved]
  - Hypotension [Recovered/Resolved]

NARRATIVE: CASE EVENT DATE: 20150930
